FAERS Safety Report 17544613 (Version 1)
Quarter: 2020Q1

REPORT INFORMATION
  Report Type: Spontaneous
  Country: US (occurrence: US)
  Receive Date: 20200316
  Receipt Date: 20200316
  Transmission Date: 20200409
  Serious: Yes (Other)
  Sender: FDA-Public Use
  Company Number: US-PFIZER INC-2020111127

PATIENT
  Age: 76 Year
  Sex: Female

DRUGS (1)
  1. XELJANZ [Suspect]
     Active Substance: TOFACITINIB CITRATE
     Indication: RHEUMATOID ARTHRITIS
     Dosage: UNK
     Dates: end: 202002

REACTIONS (9)
  - Eye swelling [Unknown]
  - Arthralgia [Unknown]
  - Burning sensation [Unknown]
  - Eye infection [Unknown]
  - Ocular discomfort [Unknown]
  - Pain in extremity [Unknown]
  - Gait inability [Unknown]
  - Peripheral swelling [Unknown]
  - Onychomadesis [Unknown]
